FAERS Safety Report 20739443 (Version 1)
Quarter: 2022Q2

REPORT INFORMATION
  Report Type: Report from Study
  Country: ES (occurrence: ES)
  Receive Date: 20220422
  Receipt Date: 20220422
  Transmission Date: 20220721
  Serious: Yes (Other)
  Sender: FDA-Public Use
  Company Number: ES-MYLANLABS-2022M1028397

PATIENT
  Age: 4 Year
  Sex: Female

DRUGS (4)
  1. TOPIRAMATE [Suspect]
     Active Substance: TOPIRAMATE
     Indication: Epileptic encephalopathy
     Dosage: UNK
     Route: 065
  2. VALPROIC ACID [Suspect]
     Active Substance: VALPROIC ACID
     Indication: Epileptic encephalopathy
     Dosage: 45 MILLIGRAM/KILOGRAM, QD
     Route: 065
  3. CLOBAZAM [Suspect]
     Active Substance: CLOBAZAM
     Indication: Epileptic encephalopathy
     Dosage: UNK
     Route: 065
  4. RUFINAMIDE [Suspect]
     Active Substance: RUFINAMIDE
     Indication: Epileptic encephalopathy
     Dosage: UNK
     Route: 065

REACTIONS (1)
  - Fanconi syndrome acquired [Unknown]
